FAERS Safety Report 4989166-2 (Version None)
Quarter: 2006Q2

REPORT INFORMATION
  Report Type: 
  Country: None (occurrence: None)
  Receive Date: 20060425
  Receipt Date: 20060413
  Transmission Date: 20061013
  Serious: Yes (Other)
  Sender: FDA-Public Use
  Company Number: 2006051075

PATIENT
  Age: 42 Year
  Sex: Female
  Weight: 135.1719 kg

DRUGS (19)
  1. XANAX [Suspect]
     Indication: ANXIETY
     Dosage: 0.5 MG (0.5 MG, AS NEEDED),
     Dates: start: 20060224, end: 20060401
  2. GEODON [Suspect]
     Indication: DEPRESSION
     Dosage: 40 MG (40 MG, 1 IN 1 D),
     Dates: start: 20060320
  3. NUTROPIN [Concomitant]
  4. DURAGESIC-100 [Concomitant]
  5. CYMBALTA [Concomitant]
  6. HYDROCODONE [Concomitant]
  7. LEVOTHYROXINE SODIUM [Concomitant]
  8. RESTORIL [Concomitant]
  9. FOLIC ACID [Concomitant]
  10. PROPRANOLOL [Concomitant]
  11. VALIUM [Concomitant]
  12. MOBIC [Concomitant]
  13. DIOVAN [Concomitant]
  14. TOPROL-XL [Concomitant]
  15. AMBIEN [Concomitant]
  16. DHEA (PRASTERONE) [Concomitant]
  17. PROMETHAZINE [Concomitant]
  18. ALBUTEROL [Concomitant]
  19. PREMPRO [Concomitant]

REACTIONS (4)
  - BRAIN NEOPLASM [None]
  - CONDITION AGGRAVATED [None]
  - CRYING [None]
  - DEPRESSION [None]
